FAERS Safety Report 9341597 (Version 1)
Quarter: 2013Q2

REPORT INFORMATION
  Report Type: Report from Study
  Country: NL (occurrence: NL)
  Receive Date: 20130611
  Receipt Date: 20130611
  Transmission Date: 20140414
  Serious: Yes (Death)
  Sender: FDA-Public Use
  Company Number: PHHY2013NL058769

PATIENT
  Age: 71 Year
  Sex: Male

DRUGS (4)
  1. ZOMETA [Suspect]
     Indication: PROSTATE CANCER METASTATIC
     Dosage: 4 MG/100 ML,ONCE EVERY 12 WEEKS
     Route: 042
  2. ZOMETA [Suspect]
     Dosage: 4 MG/100 ML ONCE EVERY 12 WEEKS
     Route: 042
     Dates: start: 20110225
  3. ZOMETA [Suspect]
     Dosage: 4 MG/100 ML ONCE EVERY 12 WEEKS
     Route: 042
     Dates: start: 20130103
  4. ZOMETA [Suspect]
     Dosage: 4 MG/100 ML ONCE EVERY 12 WEEKS
     Route: 042
     Dates: start: 20130328

REACTIONS (1)
  - Death [Fatal]
